FAERS Safety Report 11137677 (Version 1)
Quarter: 2015Q2

REPORT INFORMATION
  Report Type: Spontaneous
  Country: US (occurrence: US)
  Receive Date: 20150526
  Receipt Date: 20150526
  Transmission Date: 20150821
  Serious: Yes (Other)
  Sender: FDA-Public Use
  Company Number: US-ASTRAZENECA-2015SE51105

PATIENT
  Sex: Male

DRUGS (2)
  1. PRILOSEC [Suspect]
     Active Substance: OMEPRAZOLE MAGNESIUM
     Dosage: UNK
     Route: 048
  2. NEXIUM [Suspect]
     Active Substance: ESOMEPRAZOLE MAGNESIUM
     Dosage: 40
     Route: 048

REACTIONS (5)
  - Gastrooesophageal reflux disease [Unknown]
  - Vomiting [Unknown]
  - Fall [Unknown]
  - Drug ineffective [Unknown]
  - Cervical vertebral fracture [Unknown]
